FAERS Safety Report 20719268 (Version 1)
Quarter: 2022Q2

REPORT INFORMATION
  Report Type: Spontaneous
  Country: US (occurrence: None)
  Receive Date: 20220415
  Receipt Date: 20220415
  Transmission Date: 20220721
  Serious: Yes (Hospitalization)
  Sender: FDA-Public Use
  Company Number: None

PATIENT
  Age: 47 Year
  Sex: Female

DRUGS (1)
  1. AMBRISENTAN [Suspect]
     Active Substance: AMBRISENTAN
     Indication: Pulmonary arterial hypertension
     Dosage: 10MG QD ORAL
     Route: 048
     Dates: start: 20220208, end: 20220407

REACTIONS (4)
  - Back pain [None]
  - Abdominal wall oedema [None]
  - Iron deficiency anaemia [None]
  - Pulmonary hypertension [None]

NARRATIVE: CASE EVENT DATE: 20220408
